FAERS Safety Report 10194726 (Version 1)
Quarter: 2014Q2

REPORT INFORMATION
  Report Type: Report from Study
  Country: AR (occurrence: AR)
  Receive Date: 20140526
  Receipt Date: 20140526
  Transmission Date: 20141212
  Serious: Yes (Death, Life-Threatening, Hospitalization)
  Sender: FDA-Public Use
  Company Number: AR-BRISTOL-MYERS SQUIBB COMPANY-20769808

PATIENT
  Age: 62 Year
  Sex: Male

DRUGS (1)
  1. NULOJIX [Suspect]
     Dates: start: 20140228

REACTIONS (1)
  - Death [Fatal]
